FAERS Safety Report 7538359-9 (Version None)
Quarter: 2011Q2

REPORT INFORMATION
  Report Type: 
  Country: None (occurrence: None)
  Receive Date: 20110609
  Receipt Date: 20070402
  Transmission Date: 20111010
  Serious: Yes (Hospitalization, Other)
  Sender: FDA-Public Use
  Company Number: CA-GENENTECH-319881

PATIENT
  Sex: Female
  Weight: 45 kg

DRUGS (1)
  1. XOLAIR [Suspect]
     Indication: ASTHMA
     Dosage: 225 MG, UNKNOWN
     Route: 065
     Dates: start: 20061017, end: 20070402

REACTIONS (13)
  - BRONCHOPULMONARY ASPERGILLOSIS [None]
  - DYSPNOEA [None]
  - COUGH [None]
  - PULMONARY CONGESTION [None]
  - MUSCLE SPASMS [None]
  - CHEST PAIN [None]
  - VOMITING [None]
  - PSEUDOMONAS INFECTION [None]
  - DRUG INEFFECTIVE [None]
  - BRONCHITIS [None]
  - SECRETION DISCHARGE [None]
  - BRONCHIECTASIS [None]
  - CHEST DISCOMFORT [None]
